FAERS Safety Report 8791371 (Version 1)
Quarter: 2012Q4

REPORT INFORMATION
  Report Type: 
  Country: US (occurrence: None)
  Receive Date: 20120914
  Receipt Date: 20120914
  Transmission Date: 20130627
  Serious: Yes (Hospitalization)
  Sender: FDA-Public Use
  Company Number: None

PATIENT
  Sex: Male
  Weight: 90.7 kg

DRUGS (2)
  1. BICALUTAMIDE [Suspect]
  2. GOSERELIN ACETATE [Suspect]

REACTIONS (1)
  - Angina unstable [None]
